FAERS Safety Report 4416550-8 (Version None)
Quarter: 2004Q3

REPORT INFORMATION
  Report Type: 
  Country: None (occurrence: None)
  Receive Date: 20040802
  Receipt Date: 20040723
  Transmission Date: 20050211
  Serious: Yes (Other)
  Sender: FDA-Public Use
  Company Number: 2004220044JP

PATIENT
  Age: 32 Year
  Sex: Female

DRUGS (5)
  1. NASANYL (NAFARELIN ACETATE) SPRAY [Suspect]
     Indication: ENDOMETRIOSIS
     Dosage: BID, NASAL
     Route: 045
     Dates: start: 20040430, end: 20040617
  2. LOXONIN(LOXOPROFEN SODIUM) TABLET [Suspect]
     Indication: TOOTHACHE
     Dosage: 60 M, BID, ORAL
     Route: 048
     Dates: start: 20040615, end: 20040615
  3. ALESION (EPINASTINE HYDROCHLORIDE) [Concomitant]
  4. CEFCAPENE PIVOXIL HYDROCHLORIDE (CEFCAPENE PIVOXIL HYCROCHLORIDE) [Concomitant]
  5. LYSOZYME HYDROCHLORIDE (LYSOZYME HYDROCHLORIDE) [Concomitant]

REACTIONS (3)
  - PLATELET AGGREGATION DECREASED [None]
  - POST PROCEDURAL HAEMORRHAGE [None]
  - TOOTH EXTRACTION [None]
